FAERS Safety Report 7291560-4 (Version None)
Quarter: 2011Q1

REPORT INFORMATION
  Report Type: 
  Country: None (occurrence: None)
  Receive Date: 20110214
  Receipt Date: 20110202
  Transmission Date: 20110831
  Serious: Yes (Other)
  Sender: FDA-Public Use
  Company Number: PHHY2011US09125

PATIENT
  Sex: Male

DRUGS (5)
  1. PLAVIX [Concomitant]
     Dosage: UNK
  2. LIPITOR [Concomitant]
  3. EXELON [Suspect]
     Indication: DEMENTIA ALZHEIMER'S TYPE
     Dosage: 4.6 MG, UNK
     Route: 062
  4. EXELON [Suspect]
     Dosage: 9.5 MG, QD
     Route: 062
     Dates: start: 20080101
  5. NAMENDA [Concomitant]

REACTIONS (1)
  - HALLUCINATION [None]
